FAERS Safety Report 8978776 (Version 2)
Quarter: 2013Q1

REPORT INFORMATION
  Report Type: Report from Study
  Country: AU (occurrence: AU)
  Receive Date: 20121221
  Receipt Date: 20130318
  Transmission Date: 20140127
  Serious: Yes (Hospitalization)
  Sender: FDA-Public Use
  Company Number: PHHY2012AU115157

PATIENT
  Sex: Female
  Weight: 3.11 kg

DRUGS (2)
  1. CLOZARIL [Suspect]
     Route: 064
  2. SERTRALINE [Suspect]
     Dosage: UNK UKN, UNK
     Route: 064

REACTIONS (3)
  - Kidney enlargement [Unknown]
  - Intestinal obstruction [Unknown]
  - Foetal exposure during pregnancy [Unknown]
